FAERS Safety Report 12037932 (Version 1)
Quarter: 2016Q1

REPORT INFORMATION
  Report Type: Report from Study
  Country: US (occurrence: US)
  Receive Date: 20160208
  Receipt Date: 20160208
  Transmission Date: 20160526
  Serious: Yes (Hospitalization)
  Sender: FDA-Public Use
  Company Number: US-ABBVIE-15K-163-1526672-00

PATIENT
  Sex: Female

DRUGS (1)
  1. HUMIRA [Suspect]
     Active Substance: ADALIMUMAB
     Indication: RHEUMATOID ARTHRITIS
     Route: 058

REACTIONS (9)
  - Spinal column stenosis [Not Recovered/Not Resolved]
  - Sinusitis [Unknown]
  - Tonsillectomy [Recovered/Resolved]
  - Musculoskeletal disorder [Not Recovered/Not Resolved]
  - Dysphonia [Not Recovered/Not Resolved]
  - Ear pain [Unknown]
  - Nerve compression [Not Recovered/Not Resolved]
  - Oesophageal spasm [Unknown]
  - Large intestine polyp [Unknown]
